FAERS Safety Report 6317274-2 (Version None)
Quarter: 2009Q3

REPORT INFORMATION
  Report Type: 
  Country: None (occurrence: None)
  Receive Date: 20090820
  Receipt Date: 20090814
  Transmission Date: 20100115
  Serious: Yes (Hospitalization)
  Sender: FDA-Public Use
  Company Number: FR-WYE-G04245509

PATIENT
  Sex: Male
  Weight: 79 kg

DRUGS (4)
  1. TORISEL [Interacting]
     Indication: METASTATIC RENAL CELL CARCINOMA
     Route: 042
     Dates: start: 20090512, end: 20090616
  2. TORISEL [Interacting]
     Route: 042
     Dates: start: 20090707, end: 20090707
  3. CIFLOX [Suspect]
     Dosage: UNKNOWN
     Route: 048
     Dates: start: 20090629, end: 20090706
  4. KETEK [Interacting]
     Dosage: UNKNOWN
     Route: 048
     Dates: start: 20090707, end: 20090715

REACTIONS (11)
  - APTYALISM [None]
  - DRUG HYPERSENSITIVITY [None]
  - DRUG INTERACTION [None]
  - HAEMOGLOBIN DECREASED [None]
  - LIP DRY [None]
  - LUNG DISORDER [None]
  - NEUTROPENIA [None]
  - RASH ERYTHEMATOUS [None]
  - SKIN NODULE [None]
  - THROMBOCYTOPENIC PURPURA [None]
  - TOXIC SKIN ERUPTION [None]
